FAERS Safety Report 4821972-7 (Version None)
Quarter: 2005Q4

REPORT INFORMATION
  Report Type: 
  Country: None (occurrence: None)
  Receive Date: 20051103
  Receipt Date: 20051021
  Transmission Date: 20060501
  Serious: Yes (Other)
  Sender: FDA-Public Use
  Company Number: 2005148317

PATIENT
  Age: 51 Year
  Sex: Female

DRUGS (1)
  1. RELPAX [Suspect]
     Indication: MIGRAINE
     Dosage: 40 MG, ORAL
     Route: 048
     Dates: start: 20050101

REACTIONS (3)
  - CARDIAC FAILURE [None]
  - CARDIAC VALVE DISEASE [None]
  - DRUG INEFFECTIVE [None]
